FAERS Safety Report 8387257-X (Version None)
Quarter: 2012Q2

REPORT INFORMATION
  Report Type: 
  Country: None (occurrence: None)
  Receive Date: 20120525
  Receipt Date: 20120509
  Transmission Date: 20120825
  Serious: Yes (Other)
  Sender: FDA-Public Use
  Company Number: US-ROCHE-1068782

PATIENT
  Sex: Female
  Weight: 59.02 kg

DRUGS (5)
  1. CETIRIZINE [Concomitant]
  2. OMALIZUMAB [Suspect]
     Indication: ASTHMA
     Dosage: 3 INJECTIONS EVERY TWO WEEKS
     Route: 058
     Dates: start: 20110501
  3. CIMETIDINE [Concomitant]
  4. FLUTICASONE FUROATE [Concomitant]
  5. SINGULAIR [Concomitant]

REACTIONS (1)
  - NASAL OPERATION [None]
